FAERS Safety Report 7454049-5 (Version None)
Quarter: 2011Q2

REPORT INFORMATION
  Report Type: 
  Country: None (occurrence: None)
  Receive Date: 20110502
  Receipt Date: 20110426
  Transmission Date: 20111010
  Serious: Yes (Hospitalization)
  Sender: FDA-Public Use
  Company Number: US-MERCK-1104USA03682

PATIENT
  Age: 75 Year
  Sex: Female
  Weight: 59 kg

DRUGS (4)
  1. GLIPIZIDE [Concomitant]
     Route: 065
  2. LANOXIN [Concomitant]
     Route: 065
  3. JANUVIA [Suspect]
     Indication: TYPE 2 DIABETES MELLITUS
     Route: 048
  4. JANUVIA [Suspect]
     Route: 048

REACTIONS (3)
  - DRUG INEFFECTIVE [None]
  - THROMBOSIS [None]
  - OEDEMA PERIPHERAL [None]
